FAERS Safety Report 9242686 (Version 3)
Quarter: 2013Q2

REPORT INFORMATION
  Report Type: Spontaneous
  Country: US (occurrence: US)
  Receive Date: 20130419
  Receipt Date: 20130510
  Transmission Date: 20140414
  Serious: Yes (Hospitalization)
  Sender: FDA-Public Use
  Company Number: US-SANOFI-AVENTIS-2013SA039958

PATIENT
  Age: 70 Year
  Sex: Female

DRUGS (2)
  1. ENOXAPARIN SODIUM - WINTHROP [Suspect]
  2. METFORMIN [Concomitant]

REACTIONS (2)
  - Meningitis bacterial [Not Recovered/Not Resolved]
  - Headache [Not Recovered/Not Resolved]
